FAERS Safety Report 7249382-6 (Version None)
Quarter: 2011Q1

REPORT INFORMATION
  Report Type: 
  Country: None (occurrence: None)
  Receive Date: 20110128
  Receipt Date: 20101130
  Transmission Date: 20110831
  Serious: Yes (Hospitalization, Other)
  Sender: FDA-Public Use
  Company Number: US-BAYER-201025781NA

PATIENT
  Sex: Female
  Weight: 77.098 kg

DRUGS (9)
  1. YAZ [Suspect]
     Indication: CONTRACEPTION
     Dosage: UNK
     Dates: start: 20020101, end: 20060101
  2. YASMIN [Suspect]
     Indication: ACNE
  3. YAZ [Suspect]
     Indication: MENSTRUAL CYCLE MANAGEMENT
  4. YASMIN [Suspect]
     Indication: MENSTRUAL CYCLE MANAGEMENT
  5. YAZ [Suspect]
     Indication: PREMENSTRUAL SYNDROME
  6. YASMIN [Suspect]
     Indication: PREMENSTRUAL SYNDROME
  7. DOXYCYCLINE [Concomitant]
     Indication: ACNE
     Dosage: UNK
     Dates: start: 19970101
  8. YAZ [Suspect]
     Indication: ACNE
  9. YASMIN [Suspect]
     Indication: CONTRACEPTION
     Dosage: UNK UNK, UNK
     Route: 048
     Dates: start: 20070101

REACTIONS (1)
  - PULMONARY EMBOLISM [None]
